FAERS Safety Report 9188400 (Version 1)
Quarter: 2012Q4

REPORT INFORMATION
  Report Type: 
  Country: US (occurrence: US)
  Receive Date: 20121205
  Receipt Date: 20121205
  Transmission Date: 20130627
  Serious: Yes (Other)
  Sender: FDA-Public Use
  Company Number: PHEH2012US023694

PATIENT
  Sex: Female

DRUGS (3)
  1. LETROZOLE [Suspect]
  2. SYNTHROID [Concomitant]
  3. BABY ASPIRIN [Concomitant]

REACTIONS (4)
  - Bone cancer [Unknown]
  - Bone loss [Unknown]
  - Aortic dilatation [Unknown]
  - Drug ineffective [Unknown]
